FAERS Safety Report 5864538-2 (Version None)
Quarter: 2008Q3

REPORT INFORMATION
  Report Type: 
  Country: None (occurrence: None)
  Receive Date: 20080829
  Receipt Date: 20080827
  Transmission Date: 20090109
  Serious: Yes (Death, Other)
  Sender: FDA-Public Use
  Company Number: JP-AVENTIS-200811566JP

PATIENT
  Sex: Male

DRUGS (2)
  1. AMARYL [Suspect]
  2. UNKNOWN DRUG [Suspect]

REACTIONS (2)
  - COMPLETED SUICIDE [None]
  - DEPRESSION [None]
